FAERS Safety Report 22913939 (Version 3)
Quarter: 2023Q4

REPORT INFORMATION
  Report Type: Spontaneous
  Country: US (occurrence: US)
  Receive Date: 20230906
  Receipt Date: 20231019
  Transmission Date: 20240110
  Serious: No
  Sender: FDA-Public Use
  Company Number: US-BRISTOL-MYERS SQUIBB COMPANY-2023-126101

PATIENT
  Age: 75 Year
  Sex: Female
  Weight: 92.08 kg

DRUGS (15)
  1. POMALYST [Suspect]
     Active Substance: POMALIDOMIDE
     Indication: Plasma cell myeloma
     Dosage: 1 CAP DAILY 3WKON/1WKOFF
     Route: 048
     Dates: start: 20230904
  2. NINLARO [Concomitant]
     Active Substance: IXAZOMIB CITRATE
     Indication: Plasma cell myeloma
     Dosage: FREQUENCY : WEEKLY ON DAYS 1,8,15
     Route: 048
     Dates: start: 20230904
  3. ACYCLOVIR [Concomitant]
     Active Substance: ACYCLOVIR
     Indication: Product used for unknown indication
     Route: 048
  4. ALPHA LIPOIC ACID [Concomitant]
     Active Substance: .ALPHA.-LIPOIC ACID
     Indication: Product used for unknown indication
     Route: 048
  5. DEXAMETHASONE [Concomitant]
     Active Substance: DEXAMETHASONE
     Indication: Product used for unknown indication
     Route: 048
  6. EXEMESTANE [Concomitant]
     Active Substance: EXEMESTANE
     Indication: Product used for unknown indication
     Route: 048
  7. GABAPENTIN [Concomitant]
     Active Substance: GABAPENTIN
     Indication: Product used for unknown indication
     Route: 048
  8. KLOR-CON M20 [Concomitant]
     Active Substance: POTASSIUM CHLORIDE
     Indication: Product used for unknown indication
     Route: 048
  9. MAGNESIUM OXIDE [Concomitant]
     Active Substance: MAGNESIUM OXIDE
     Indication: Product used for unknown indication
     Route: 048
  10. OXYCODONE AND ACETAMINOPHEN [Concomitant]
     Active Substance: ACETAMINOPHEN\OXYCODONE HYDROCHLORIDE
     Indication: Product used for unknown indication
     Dosage: 5-325MG
     Route: 048
  11. PROCHLORPERAZINE MALEATE [Concomitant]
     Active Substance: PROCHLORPERAZINE MALEATE
     Indication: Product used for unknown indication
     Dosage: 5-325MG
     Route: 048
  12. TELMISARTAN [Concomitant]
     Active Substance: TELMISARTAN
     Indication: Product used for unknown indication
     Dosage: 5-325MG
     Route: 048
  13. TORSEMIDE [Concomitant]
     Active Substance: TORSEMIDE
     Indication: Product used for unknown indication
     Dosage: 5-325MG
     Route: 048
  14. WARFARIN SODIUM [Concomitant]
     Active Substance: WARFARIN SODIUM
     Indication: Product used for unknown indication
     Dosage: 5-325MG
     Route: 048
  15. ZOFRAN [Concomitant]
     Active Substance: ONDANSETRON HYDROCHLORIDE
     Indication: Product used for unknown indication
     Dosage: 5-325MG
     Route: 048

REACTIONS (4)
  - Nausea [Recovering/Resolving]
  - COVID-19 [Recovering/Resolving]
  - Peripheral swelling [Not Recovered/Not Resolved]
  - Joint swelling [Not Recovered/Not Resolved]

NARRATIVE: CASE EVENT DATE: 20230904
